FAERS Safety Report 9263172 (Version 1)
Quarter: 2013Q2

REPORT INFORMATION
  Report Type: Spontaneous
  Country: US (occurrence: None)
  Receive Date: 20130426
  Receipt Date: 20130426
  Transmission Date: 20140414
  Serious: Yes (Hospitalization)
  Sender: FDA-Public Use
  Company Number: None

PATIENT
  Age: 68 Year
  Sex: Male
  Weight: 65.2 kg

DRUGS (1)
  1. XARELTO [Suspect]
     Route: 048

REACTIONS (9)
  - Incorrect dose administered [None]
  - Pyrexia [None]
  - Tachycardia [None]
  - Hypotension [None]
  - Lactic acidosis [None]
  - Leukopenia [None]
  - International normalised ratio increased [None]
  - Gastrointestinal haemorrhage [None]
  - Haematocrit decreased [None]
